FAERS Safety Report 18171284 (Version 1)
Quarter: 2020Q3

REPORT INFORMATION
  Report Type: Spontaneous
  Country: CH (occurrence: CH)
  Receive Date: 20200819
  Receipt Date: 20200819
  Transmission Date: 20201103
  Serious: No
  Sender: FDA-Public Use
  Company Number: CH-LEXICON PHARMACEUTICALS, INC-20-1606-00660

PATIENT
  Age: 71 Year
  Sex: Male

DRUGS (2)
  1. XERMELO [Suspect]
     Active Substance: TELOTRISTAT ETHYL
     Indication: OFF LABEL USE
  2. XERMELO [Suspect]
     Active Substance: TELOTRISTAT ETHYL
     Indication: CARCINOID HEART DISEASE
     Route: 065
     Dates: start: 2020

REACTIONS (1)
  - Off label use [Unknown]
